FAERS Safety Report 5203125-6 (Version None)
Quarter: 2006Q4

REPORT INFORMATION
  Report Type: 
  Country: None (occurrence: None)
  Receive Date: 20061016
  Receipt Date: 20051004
  Transmission Date: 20070319
  Serious: Yes (Other)
  Sender: FDA-Public Use
  Company Number: 2005137636

PATIENT
  Age: 79 Year
  Sex: Female
  Weight: 77.1115 kg

DRUGS (4)
  1. NEURONTIN [Suspect]
     Indication: NEUROPATHY PERIPHERAL
     Dosage: SEE IMAGE
     Dates: start: 20050101
  2. PRAVACHOL [Concomitant]
  3. CARTIA XT [Concomitant]
  4. MULTI-VITAMINS [Concomitant]

REACTIONS (2)
  - BREAST CANCER [None]
  - DRUG INEFFECTIVE [None]
